FAERS Safety Report 10055591 (Version 3)
Quarter: 2016Q2

REPORT INFORMATION
  Report Type: Report from Study
  Country: DE (occurrence: DE)
  Receive Date: 20140403
  Receipt Date: 20160420
  Transmission Date: 20160815
  Serious: Yes (Hospitalization)
  Sender: FDA-Public Use
  Company Number: DE-ROCHE-1374348

PATIENT
  Age: 74 Year
  Sex: Female

DRUGS (63)
  1. CANDESARTAN [Concomitant]
     Active Substance: CANDESARTAN
     Route: 048
     Dates: start: 20150115, end: 20150118
  2. AQUACORT [Concomitant]
     Route: 065
     Dates: start: 20140520, end: 20140530
  3. AQUACORT [Concomitant]
     Route: 065
     Dates: start: 20150411
  4. XYLONEURAL [Concomitant]
     Indication: PERIARTHRITIS
     Route: 013
     Dates: start: 20130104, end: 20130104
  5. FENISTIL (GERMANY) [Concomitant]
     Route: 048
     Dates: start: 20130906, end: 20130920
  6. ORTOTON [Concomitant]
     Route: 048
     Dates: start: 20130722, end: 20130809
  7. DEKRISTOL [Concomitant]
     Active Substance: CHOLECALCIFEROL
     Route: 048
     Dates: start: 20140520
  8. TOCILIZUMAB [Suspect]
     Active Substance: TOCILIZUMAB
     Indication: RHEUMATOID ARTHRITIS
     Dosage: DATE OF LAST DOSE OF TOCILIZUMAB PRIOR TO SAE 25/FEB/2014
     Route: 042
  9. METHOTREXATE [Concomitant]
     Active Substance: METHOTREXATE
     Indication: RHEUMATOID ARTHRITIS
     Route: 058
     Dates: start: 200908, end: 20130822
  10. MOXONIDIN [Concomitant]
     Active Substance: MOXONIDINE
     Route: 048
     Dates: start: 20141119, end: 201510
  11. SPIRIVA [Concomitant]
     Active Substance: TIOTROPIUM BROMIDE MONOHYDRATE
     Indication: CHRONIC OBSTRUCTIVE PULMONARY DISEASE
     Route: 048
     Dates: start: 201110, end: 20150605
  12. DECORTIN [Concomitant]
     Active Substance: PREDNISONE
     Route: 048
     Dates: start: 20131204, end: 20140220
  13. HYDROCHLOROTHIAZIDE. [Concomitant]
     Active Substance: HYDROCHLOROTHIAZIDE
     Route: 048
  14. HYDROCHLOROTHIAZIDE. [Concomitant]
     Active Substance: HYDROCHLOROTHIAZIDE
     Route: 048
     Dates: start: 20140630
  15. HYDROCHLOROTHIAZIDE. [Concomitant]
     Active Substance: HYDROCHLOROTHIAZIDE
     Route: 048
     Dates: start: 20140620, end: 20140629
  16. XARELTO [Concomitant]
     Active Substance: RIVAROXABAN
     Route: 048
     Dates: start: 20141119, end: 20150212
  17. IPRATROPIUMBROMID [Concomitant]
     Active Substance: IPRATROPIUM BROMIDE
     Dosage: INHALANT, AS NEEDED
     Route: 065
     Dates: start: 20141119
  18. PANTOZOL [Concomitant]
     Active Substance: PANTOPRAZOLE SODIUM
     Route: 048
  19. AQUACORT [Concomitant]
     Route: 065
     Dates: end: 20140129
  20. AQUACORT [Concomitant]
     Route: 065
     Dates: start: 20140727, end: 20150410
  21. LIPOTALON [Concomitant]
     Active Substance: DEXAMETHASONE PALMITATE
     Indication: PERIARTHRITIS
     Route: 013
     Dates: start: 20130104, end: 20130104
  22. FENISTIL (GERMANY) [Concomitant]
     Route: 048
     Dates: start: 20131031, end: 20131103
  23. HYDROCHLOROTHIAZIDE. [Concomitant]
     Active Substance: HYDROCHLOROTHIAZIDE
     Route: 048
     Dates: start: 20140520, end: 20140527
  24. NOVALGIN [Concomitant]
     Active Substance: METAMIZOLE SODIUM
     Route: 048
     Dates: start: 20140519, end: 20140610
  25. DEKRISTOL [Concomitant]
     Active Substance: CHOLECALCIFEROL
     Route: 048
     Dates: start: 201502
  26. MACROGOL BETA [Concomitant]
     Route: 048
     Dates: start: 20140519, end: 20140619
  27. SYMBICORT [Concomitant]
     Active Substance: BUDESONIDE\FORMOTEROL FUMARATE DIHYDRATE
     Route: 065
     Dates: start: 201403, end: 201403
  28. ITRACONAZOL [Concomitant]
     Active Substance: ITRACONAZOLE
     Route: 048
     Dates: start: 20140528, end: 20140610
  29. CANDESARTAN [Concomitant]
     Active Substance: CANDESARTAN
     Route: 048
     Dates: start: 20150115, end: 20150118
  30. SIMVASTATIN. [Concomitant]
     Active Substance: SIMVASTATIN
     Route: 048
     Dates: end: 20140305
  31. NOVALGIN [Concomitant]
     Active Substance: METAMIZOLE SODIUM
     Route: 048
     Dates: start: 20140611, end: 20140705
  32. DEKRISTOL [Concomitant]
     Active Substance: CHOLECALCIFEROL
     Route: 048
     Dates: start: 20150222
  33. MACROGOL BETA [Concomitant]
     Route: 048
     Dates: start: 20140620, end: 20140625
  34. FOLIC ACID. [Concomitant]
     Active Substance: FOLIC ACID
     Indication: RHEUMATOID ARTHRITIS
     Route: 048
     Dates: start: 200908, end: 20130822
  35. VIGANTOLETTEN [Concomitant]
     Active Substance: CHOLECALCIFEROL
     Indication: OSTEOPOROSIS
     Route: 048
     Dates: end: 201405
  36. CANDESARTAN [Concomitant]
     Active Substance: CANDESARTAN
     Route: 048
     Dates: start: 20140306
  37. MOXONIDIN [Concomitant]
     Active Substance: MOXONIDINE
     Indication: HYPERTENSION
     Route: 048
     Dates: end: 20140629
  38. AQUACORT [Concomitant]
     Route: 065
     Dates: start: 20140526, end: 20140530
  39. ORTOTON [Concomitant]
     Route: 048
     Dates: start: 20140330, end: 20140330
  40. AMLODIPIN [Concomitant]
     Active Substance: AMLODIPINE BESYLATE
     Route: 048
     Dates: start: 20140630, end: 20141119
  41. SALBUTAMOL [Concomitant]
     Active Substance: ALBUTEROL
     Dosage: INHALANT, AS NEEDED
     Route: 045
     Dates: start: 20140519
  42. SIMVAHEXAL [Concomitant]
     Active Substance: SIMVASTATIN
     Route: 048
     Dates: start: 20140622
  43. VIANI [Concomitant]
     Active Substance: FLUTICASONE PROPIONATE\SALMETEROL XINAFOATE
     Indication: ASTHMA
     Route: 048
     Dates: start: 201207, end: 20141204
  44. COLESTYRAMIN [Concomitant]
     Route: 048
     Dates: start: 20121120, end: 20121128
  45. ATROVENT [Concomitant]
     Active Substance: IPRATROPIUM BROMIDE
     Indication: ASTHMA
     Route: 045
     Dates: start: 20131224
  46. BRICANYL [Concomitant]
     Active Substance: TERBUTALINE SULFATE
     Route: 065
     Dates: start: 201403, end: 201403
  47. CANDESARTAN [Concomitant]
     Active Substance: CANDESARTAN
     Indication: HYPERTENSION
     Route: 048
     Dates: end: 20140305
  48. MOXONIDIN [Concomitant]
     Active Substance: MOXONIDINE
     Route: 048
     Dates: start: 201510
  49. AMOXICILLIN. [Concomitant]
     Active Substance: AMOXICILLIN
     Indication: OTITIS MEDIA
     Route: 048
     Dates: start: 20130225, end: 20130303
  50. SALBUTAMOL [Concomitant]
     Active Substance: ALBUTEROL
     Indication: ASTHMA
     Route: 045
     Dates: start: 20131224
  51. AMLODIPIN [Concomitant]
     Active Substance: AMLODIPINE BESYLATE
     Indication: HYPERTENSION
     Route: 048
     Dates: start: 20140322
  52. HYDROCHLOROTHIAZIDE. [Concomitant]
     Active Substance: HYDROCHLOROTHIAZIDE
     Indication: HYPERTENSION
     Route: 048
     Dates: start: 20140306
  53. SALOFALK [Concomitant]
     Active Substance: MESALAMINE
     Route: 048
  54. ATROVENT [Concomitant]
     Active Substance: IPRATROPIUM BROMIDE
     Dosage: INHALANT, AS NEEDED
     Route: 045
     Dates: start: 20140519
  55. XARELTO [Concomitant]
     Active Substance: RIVAROXABAN
     Route: 048
     Dates: start: 20141016, end: 20141118
  56. TOCILIZUMAB [Concomitant]
     Active Substance: TOCILIZUMAB
     Dosage: EVERY MONTH
     Route: 058
     Dates: start: 20160125
  57. MOXONIDIN [Concomitant]
     Active Substance: MOXONIDINE
     Route: 048
     Dates: start: 20140630, end: 20141118
  58. VIANI [Concomitant]
     Active Substance: FLUTICASONE PROPIONATE\SALMETEROL XINAFOATE
     Dosage: INHALANT
     Route: 048
     Dates: start: 20141205
  59. DECORTIN [Concomitant]
     Active Substance: PREDNISONE
     Indication: RHEUMATOID ARTHRITIS
     Route: 048
     Dates: start: 20131125, end: 20131203
  60. IBUPROFEN. [Concomitant]
     Active Substance: IBUPROFEN
     Indication: RHEUMATOID ARTHRITIS
     Route: 048
     Dates: start: 20131125, end: 20131127
  61. NOVALGIN [Concomitant]
     Active Substance: METAMIZOLE SODIUM
     Indication: RHEUMATOID ARTHRITIS
     Route: 048
     Dates: start: 20131125
  62. TRAMAL [Concomitant]
     Active Substance: TRAMADOL
     Route: 048
     Dates: start: 20140330, end: 20140527
  63. EKLIRA GENUAIR [Concomitant]
     Active Substance: ACLIDINIUM BROMIDE
     Dosage: INHALANT
     Route: 048
     Dates: start: 20150606

REACTIONS (3)
  - Aspergillus infection [Recovered/Resolved]
  - Pneumonia [Recovered/Resolved]
  - Asthma [Recovered/Resolved]

NARRATIVE: CASE EVENT DATE: 20140306
